FAERS Safety Report 12999398 (Version 1)
Quarter: 2016Q4

REPORT INFORMATION
  Report Type: Spontaneous
  Country: CN (occurrence: CN)
  Receive Date: 20161205
  Receipt Date: 20161205
  Transmission Date: 20170207
  Serious: Yes (Hospitalization)
  Sender: FDA-Public Use
  Company Number: CN-EPIC PHARMA LLC-2016EPC00025

PATIENT
  Age: 49 Year
  Sex: Female

DRUGS (4)
  1. OLMESARTAN [Concomitant]
     Active Substance: OLMESARTAN
     Indication: HYPERTENSION
     Route: 048
  2. URSODEOXYCHOLIC ACID [Suspect]
     Active Substance: URSODIOL
     Dosage: 250 MG, 1X/DAY
     Route: 048
  3. URSODEOXYCHOLIC ACID [Suspect]
     Active Substance: URSODIOL
     Indication: LIVER DISORDER
     Dosage: 250 MG, 2X/DAY
     Route: 048
  4. LEAVAMLOPIDINE BESYLATE [Concomitant]
     Indication: HYPERTENSION
     Route: 048

REACTIONS (1)
  - Drug-induced liver injury [Recovered/Resolved]
